FAERS Safety Report 17942031 (Version 1)
Quarter: 2020Q2

REPORT INFORMATION
  Report Type: Spontaneous
  Country: US (occurrence: US)
  Receive Date: 20200624
  Receipt Date: 20200624
  Transmission Date: 20200714
  Serious: Yes (Other)
  Sender: FDA-Public Use
  Company Number: US-AMGEN-USASP2020096537

PATIENT
  Age: 59 Year
  Sex: Male

DRUGS (6)
  1. SENSIPAR [Suspect]
     Active Substance: CINACALCET HYDROCHLORIDE
     Indication: HYPERCALCAEMIA
     Dosage: UNK
     Route: 065
  2. VEDOLIZUMAB [Concomitant]
     Active Substance: VEDOLIZUMAB
     Indication: COLITIS ULCERATIVE
  3. INFLIXIMAB [Concomitant]
     Active Substance: INFLIXIMAB
     Indication: COLITIS ULCERATIVE
  4. CALCITRIOL. [Concomitant]
     Active Substance: CALCITRIOL
  5. CALCIUM [Concomitant]
     Active Substance: CALCIUM
  6. ZOLEDRONIC ACID [Concomitant]
     Active Substance: ZOLEDRONIC ACID

REACTIONS (3)
  - Drug ineffective for unapproved indication [Unknown]
  - Metastases to lung [Unknown]
  - Metastases to diaphragm [Unknown]
